FAERS Safety Report 24125702 (Version 1)
Quarter: 2024Q3

REPORT INFORMATION
  Report Type: Spontaneous
  Country: NL (occurrence: NL)
  Receive Date: 20240723
  Receipt Date: 20240723
  Transmission Date: 20241016
  Serious: Yes (Life-Threatening, Hospitalization)
  Sender: MYLAN
  Company Number: NL-MYLANLABS-2024M1066133

PATIENT
  Age: 62 Year
  Sex: Female

DRUGS (4)
  1. ROCURONIUM [Suspect]
     Active Substance: ROCURONIUM BROMIDE
     Indication: Sedative therapy
     Dosage: UNK
     Route: 065
  2. PREDNISONE [Concomitant]
     Active Substance: PREDNISONE
     Indication: Myasthenic syndrome
     Dosage: UNK; HIGH DOSE
     Route: 065
  3. AMIFAMPRIDINE [Concomitant]
     Active Substance: AMIFAMPRIDINE
     Indication: Myasthenic syndrome
     Dosage: UNK
     Route: 065
  4. Immunoglobulin [Concomitant]
     Indication: Myasthenic syndrome
     Dosage: UNK
     Route: 042

REACTIONS (4)
  - Respiratory failure [Recovering/Resolving]
  - Muscular weakness [Recovering/Resolving]
  - Hypercapnia [Recovering/Resolving]
  - Hypotonia [Recovering/Resolving]
